FAERS Safety Report 13969870 (Version 3)
Quarter: 2017Q4

REPORT INFORMATION
  Report Type: Report from Study
  Country: GB (occurrence: GB)
  Receive Date: 20170914
  Receipt Date: 20171102
  Transmission Date: 20180321
  Serious: Yes (Hospitalization)
  Sender: FDA-Public Use
  Company Number: GB-AMGEN-GBRSL2017137048

PATIENT
  Sex: Female

DRUGS (3)
  1. INSULIN [Concomitant]
     Active Substance: INSULIN NOS
  2. ARANESP [Suspect]
     Active Substance: DARBEPOETIN ALFA
     Dosage: 60 MUG, UNK
     Route: 065
  3. ARANESP [Suspect]
     Active Substance: DARBEPOETIN ALFA
     Indication: PRODUCT USED FOR UNKNOWN INDICATION
     Dosage: 40 MUG, UNK
     Route: 065

REACTIONS (3)
  - Mobility decreased [Unknown]
  - Fluid overload [Unknown]
  - Renal disorder [Unknown]
